FAERS Safety Report 8142672-4 (Version None)
Quarter: 2012Q1

REPORT INFORMATION
  Report Type: 
  Country: None (occurrence: None)
  Receive Date: 20120216
  Receipt Date: 20120209
  Transmission Date: 20120608
  Serious: Yes (Hospitalization)
  Sender: FDA-Public Use
  Company Number: NO-BAXTER-2012BH004121

PATIENT
  Sex: Male

DRUGS (2)
  1. GAMMAGARD LIQUID [Suspect]
     Indication: OFF LABEL USE
     Route: 042
     Dates: start: 20120121, end: 20120123
  2. GAMMAGARD LIQUID [Suspect]
     Indication: MYASTHENIC SYNDROME
     Route: 042
     Dates: start: 20120121, end: 20120123

REACTIONS (1)
  - HAEMOGLOBIN DECREASED [None]
